FAERS Safety Report 16221132 (Version 2)
Quarter: 2020Q4

REPORT INFORMATION
  Report Type: Spontaneous
  Country: US (occurrence: US)
  Receive Date: 20190422
  Receipt Date: 20201224
  Transmission Date: 20210113
  Serious: Yes (Hospitalization)
  Sender: FDA-Public Use
  Company Number: US-JNJFOC-20190413602

PATIENT
  Age: 46 Year
  Sex: Female

DRUGS (1)
  1. XARELTO [Suspect]
     Active Substance: RIVAROXABAN
     Indication: DEEP VEIN THROMBOSIS
     Route: 048
     Dates: start: 20170624, end: 201709

REACTIONS (3)
  - Uterine haemorrhage [Recovering/Resolving]
  - Acute kidney injury [Recovering/Resolving]
  - Renal haematoma [Recovering/Resolving]

NARRATIVE: CASE EVENT DATE: 201709
